FAERS Safety Report 7084217-6 (Version None)
Quarter: 2010Q4

REPORT INFORMATION
  Report Type: 
  Country: None (occurrence: None)
  Receive Date: 20101104
  Receipt Date: 20101102
  Transmission Date: 20110411
  Serious: Yes (Life-Threatening, Hospitalization, Other)
  Sender: FDA-Public Use
  Company Number: GXKR2010DE12253

PATIENT
  Age: 42 Year
  Sex: Male
  Weight: 89 kg

DRUGS (10)
  1. VALPROAT HEXAL CHRONO (NGX) [Suspect]
     Indication: DELIRIUM TREMENS
     Dosage: 300 MG, UNK
     Route: 048
     Dates: start: 20080218, end: 20080402
  2. CONVULEX ^PROMONTA LUNDBECK^ [Suspect]
     Indication: DELIRIUM TREMENS
     Dosage: 300 MG, UNK
     Route: 048
     Dates: start: 20080218, end: 20080402
  3. HALDOL [Suspect]
     Indication: DELIRIUM TREMENS
     Dosage: UNK
     Route: 042
     Dates: start: 20080327, end: 20080330
  4. HALDOL [Suspect]
     Dosage: 15 MG, UNK
     Route: 048
     Dates: start: 20080327, end: 20080327
  5. HYDROCHLOROTHIAZIDE [Concomitant]
     Indication: HYPERTENSION
     Dosage: UNK
     Route: 048
     Dates: start: 20080211, end: 20080327
  6. RAMIPRIL [Concomitant]
     Indication: HYPERTENSION
     Dosage: UNK
     Route: 048
     Dates: start: 20080801, end: 20080327
  7. METOPROLOL SUCCINATE [Concomitant]
     Indication: HYPERTENSION
     Route: 048
  8. DIAZEPAM [Concomitant]
     Route: 042
  9. DIAZEPAM [Concomitant]
     Route: 048
  10. LORAZEPAM [Concomitant]
     Route: 048

REACTIONS (2)
  - LONG QT SYNDROME [None]
  - TORSADE DE POINTES [None]
